FAERS Safety Report 8391553-X (Version None)
Quarter: 2012Q2

REPORT INFORMATION
  Report Type: 
  Country: None (occurrence: None)
  Receive Date: 20120529
  Receipt Date: 20120523
  Transmission Date: 20120825
  Serious: Yes (Other)
  Sender: FDA-Public Use
  Company Number: IT-PFIZER INC-2012125531

PATIENT
  Age: 41 Year
  Sex: Female

DRUGS (2)
  1. CARBOPLATIN [Suspect]
     Indication: OVARIAN CANCER
     Dosage: 400 MG, CYCLIC
     Route: 042
     Dates: start: 20120523, end: 20120523
  2. PACLITAXEL [Concomitant]

REACTIONS (3)
  - MALAISE [None]
  - VOMITING [None]
  - CHILLS [None]
